FAERS Safety Report 20193102 (Version 1)
Quarter: 2021Q4

REPORT INFORMATION
  Report Type: Spontaneous
  Country: US (occurrence: None)
  Receive Date: 20211215
  Receipt Date: 20211215
  Transmission Date: 20220303
  Serious: Yes (Hospitalization)
  Sender: FDA-Public Use
  Company Number: None

PATIENT
  Age: 41 Year
  Sex: Female

DRUGS (5)
  1. TASIGNA [Suspect]
     Active Substance: NILOTINIB
     Indication: Philadelphia positive chronic myeloid leukaemia
     Dosage: FREQUENCY : EVERY 12 HOURS;?
     Route: 048
  2. ALLOPURNIOL [Concomitant]
  3. HYDREA [Concomitant]
     Active Substance: HYDROXYUREA
  4. LORZAEPAM [Concomitant]
  5. SYMBICORT AER [Concomitant]

REACTIONS (1)
  - Pancreatitis [None]

NARRATIVE: CASE EVENT DATE: 20211211
